FAERS Safety Report 7889173-6 (Version None)
Quarter: 2011Q4

REPORT INFORMATION
  Report Type: 
  Country: None (occurrence: None)
  Receive Date: 20111103
  Receipt Date: 20111031
  Transmission Date: 20120403
  Serious: Yes (Other)
  Sender: FDA-Public Use
  Company Number: NL-PFIZER INC-2011265390

PATIENT
  Age: 62 Year
  Sex: Female

DRUGS (2)
  1. LESCOL [Suspect]
     Dosage: UNK
  2. ATORVASTATIN CALCIUM [Suspect]
     Indication: HYPERCHOLESTEROLAEMIA
     Dosage: UNK

REACTIONS (7)
  - BURNING SENSATION [None]
  - ORAL PAIN [None]
  - ERYTHEMA [None]
  - MYALGIA [None]
  - PAIN [None]
  - CIRCULATORY COLLAPSE [None]
  - OROPHARYNGEAL PAIN [None]
